FAERS Safety Report 9825816 (Version 1)
Quarter: 2013Q4

REPORT INFORMATION
  Report Type: Spontaneous
  Country: US (occurrence: None)
  Receive Date: 20131104
  Receipt Date: 20131104
  Transmission Date: 20140711
  Serious: No
  Sender: FDA-Public Use
  Company Number: 1000048518

PATIENT
  Age: 80 Year
  Sex: Male

DRUGS (1)
  1. DALIRESP [Suspect]
     Indication: CHRONIC OBSTRUCTIVE PULMONARY DISEASE
     Dosage: 500 MCG EVERY OTHER DAY (500 MCG, 1 IN 2 D), ORAL
     Route: 048
     Dates: start: 201308

REACTIONS (1)
  - Diarrhoea [None]
